FAERS Safety Report 13295628 (Version 1)
Quarter: 2017Q1

REPORT INFORMATION
  Report Type: Spontaneous
  Country: DE (occurrence: DE)
  Receive Date: 20170303
  Receipt Date: 20170303
  Transmission Date: 20170428
  Serious: Yes (Hospitalization)
  Sender: FDA-Public Use
  Company Number: GXKR2017DE001382

PATIENT

DRUGS (2)
  1. L THYROXIN [Concomitant]
     Active Substance: LEVOTHYROXINE SODIUM
     Indication: HYPOTHYROIDISM
  2. LEVOFLOXACIN. [Suspect]
     Active Substance: LEVOFLOXACIN
     Indication: RESPIRATORY TRACT INFECTION BACTERIAL
     Dosage: 500 MG, ONCE/SINGLE
     Route: 048
     Dates: start: 20130206

REACTIONS (20)
  - Aphasia [Recovered/Resolved]
  - Blood pressure fluctuation [Recovered/Resolved]
  - Dizziness [Unknown]
  - Muscle atrophy [Recovered/Resolved]
  - Myalgia [Recovered/Resolved]
  - Suicidal behaviour [Unknown]
  - Petechiae [Unknown]
  - Chest discomfort [Recovered/Resolved]
  - Tendon disorder [Unknown]
  - Weight decreased [Recovered/Resolved]
  - Dysphagia [Unknown]
  - Sensory disturbance [Recovered/Resolved]
  - Dyspnoea [Unknown]
  - Asthenia [Unknown]
  - Panic attack [Unknown]
  - Muscular weakness [Unknown]
  - Depression [Unknown]
  - Brachial pulse increased [Unknown]
  - Arrhythmia [Unknown]
  - Blood glucose decreased [Unknown]

NARRATIVE: CASE EVENT DATE: 201302
